FAERS Safety Report 4567377-8 (Version None)
Quarter: 2005Q1

REPORT INFORMATION
  Report Type: 
  Country: None (occurrence: None)
  Receive Date: 20050127
  Receipt Date: 20050121
  Transmission Date: 20050727
  Serious: Yes (Other)
  Sender: FDA-Public Use
  Company Number: THQ2005A00146

PATIENT
  Age: 42 Year
  Sex: Female

DRUGS (2)
  1. LANSOPRAZOLE [Suspect]
     Indication: DYSPEPSIA
  2. LANSOPRAZOLE [Suspect]
     Indication: HIATUS HERNIA

REACTIONS (3)
  - DYSAESTHESIA [None]
  - PARAESTHESIA [None]
  - POLYNEUROPATHY [None]
